FAERS Safety Report 8544028-9 (Version None)
Quarter: 2012Q3

REPORT INFORMATION
  Report Type: 
  Country: None (occurrence: None)
  Receive Date: 20120727
  Receipt Date: 20120724
  Transmission Date: 20120928
  Serious: Yes (Life-Threatening, Hospitalization, Other)
  Sender: FDA-Public Use
  Company Number: JP-PFIZER INC-2012103950

PATIENT
  Age: 85 Year
  Sex: Female

DRUGS (1)
  1. LYRICA [Suspect]
     Indication: PAIN IN EXTREMITY
     Dosage: 75MG ONCE OR TWICE DAILY
     Route: 048
     Dates: start: 20110406, end: 20120419

REACTIONS (3)
  - LOSS OF CONSCIOUSNESS [None]
  - BRADYCARDIA [None]
  - CARDIAC FAILURE CONGESTIVE [None]
